FAERS Safety Report 6164463-6 (Version None)
Quarter: 2009Q2

REPORT INFORMATION
  Report Type: 
  Country: None (occurrence: None)
  Receive Date: 20090421
  Receipt Date: 20090407
  Transmission Date: 20091009
  Serious: Yes (Hospitalization)
  Sender: FDA-Public Use
  Company Number: 233067K09USA

PATIENT
  Age: 57 Year
  Sex: Female

DRUGS (1)
  1. REBIF [Suspect]
     Indication: MULTIPLE SCLEROSIS
     Dosage: 44 MCG, 3 IN 1 WEEKS, SUBCUTANEOUS
     Route: 058
     Dates: start: 20060116, end: 20090201

REACTIONS (6)
  - CARDIAC FAILURE [None]
  - DYSPHAGIA [None]
  - EYE ROLLING [None]
  - HYPERTENSION [None]
  - THYROID DISORDER [None]
  - UNRESPONSIVE TO STIMULI [None]
